FAERS Safety Report 5450403-1 (Version None)
Quarter: 2007Q3

REPORT INFORMATION
  Report Type: 
  Country: None (occurrence: None)
  Receive Date: 20070803
  Receipt Date: 20070615
  Transmission Date: 20080115
  Serious: Yes (Other)
  Sender: FDA-Public Use
  Company Number: 38209

PATIENT
  Age: 24 Year
  Sex: Male
  Weight: 128.368 kg

DRUGS (2)
  1. PROPOFOL [Suspect]
     Dosage: 140, 20, 160 MG; IV
     Route: 042
     Dates: start: 20070522
  2. ACIPHEX [Concomitant]

REACTIONS (1)
  - INFLUENZA LIKE ILLNESS [None]
